FAERS Safety Report 7012443-0 (Version None)
Quarter: 2010Q3

REPORT INFORMATION
  Report Type: 
  Country: None (occurrence: None)
  Receive Date: 20100924
  Receipt Date: 20100914
  Transmission Date: 20110219
  Serious: Yes (Other)
  Sender: FDA-Public Use
  Company Number: US-SANOFI-AVENTIS-2010SA039211

PATIENT
  Age: 73 Year
  Sex: Male

DRUGS (2)
  1. OPTICLICK [Suspect]
     Dates: start: 20080101
  2. LANTUS [Suspect]
     Dosage: 33 OR 34 UNITS DAILY
     Route: 058
     Dates: start: 20080101

REACTIONS (6)
  - BLOOD GLUCOSE INCREASED [None]
  - CATARACT [None]
  - EYE HAEMORRHAGE [None]
  - PRODUCT QUALITY ISSUE [None]
  - SCAR [None]
  - VISUAL IMPAIRMENT [None]
